FAERS Safety Report 23007727 (Version 27)
Quarter: 2025Q4

REPORT INFORMATION
  Report Type: Report from Study
  Country: CA (occurrence: CA)
  Receive Date: 20230929
  Receipt Date: 20251230
  Transmission Date: 20260117
  Serious: Yes (Other)
  Sender: JOHNSON AND JOHNSON
  Company Number: CA-JNJFOC-20220431353

PATIENT
  Age: 19 Year
  Sex: Male
  Weight: 112 kg

DRUGS (34)
  1. REMICADE [Suspect]
     Active Substance: INFLIXIMAB
     Indication: Crohn^s disease
     Route: 041
     Dates: start: 20210226
  2. REMICADE [Suspect]
     Active Substance: INFLIXIMAB
     Indication: Crohn^s disease
     Route: 041
     Dates: start: 20210226
  3. REMICADE [Suspect]
     Active Substance: INFLIXIMAB
     Dosage: DOSE: 1105 MG AND 1100 AS PER PATIENT WEIGHT
     Route: 041
     Dates: start: 20210226
  4. REMICADE [Suspect]
     Active Substance: INFLIXIMAB
     Dosage: DOSE: 1105 MG AND 1100 AS PER PATIENT WEIGHT
     Route: 041
     Dates: start: 20210226
  5. REMICADE [Suspect]
     Active Substance: INFLIXIMAB
     Route: 041
  6. REMICADE [Suspect]
     Active Substance: INFLIXIMAB
     Route: 041
     Dates: start: 20210226
  7. REMICADE [Suspect]
     Active Substance: INFLIXIMAB
     Route: 041
     Dates: start: 20210226
  8. REMICADE [Suspect]
     Active Substance: INFLIXIMAB
     Route: 041
     Dates: start: 20210226
  9. REMICADE [Suspect]
     Active Substance: INFLIXIMAB
     Route: 041
     Dates: start: 20210226
  10. REMICADE [Suspect]
     Active Substance: INFLIXIMAB
     Route: 041
     Dates: start: 20210226
  11. REMICADE [Suspect]
     Active Substance: INFLIXIMAB
     Route: 041
     Dates: start: 20210226
  12. REMICADE [Suspect]
     Active Substance: INFLIXIMAB
     Route: 041
     Dates: start: 20210226
  13. REMICADE [Suspect]
     Active Substance: INFLIXIMAB
     Route: 041
     Dates: start: 20210226
  14. REMICADE [Suspect]
     Active Substance: INFLIXIMAB
     Route: 041
     Dates: start: 20210226
  15. REMICADE [Suspect]
     Active Substance: INFLIXIMAB
     Route: 041
     Dates: start: 20210226
  16. REMICADE [Suspect]
     Active Substance: INFLIXIMAB
     Route: 041
     Dates: start: 20210226
  17. REMICADE [Suspect]
     Active Substance: INFLIXIMAB
     Route: 041
     Dates: start: 20210226
  18. REMICADE [Suspect]
     Active Substance: INFLIXIMAB
     Route: 041
     Dates: start: 20250809
  19. REMICADE [Suspect]
     Active Substance: INFLIXIMAB
     Route: 041
     Dates: start: 20210226
  20. REMICADE [Suspect]
     Active Substance: INFLIXIMAB
     Route: 041
     Dates: start: 2021
  21. REMICADE [Suspect]
     Active Substance: INFLIXIMAB
     Route: 041
  22. REMICADE [Suspect]
     Active Substance: INFLIXIMAB
     Route: 041
  23. REMICADE [Suspect]
     Active Substance: INFLIXIMAB
     Route: 041
  24. REMICADE [Suspect]
     Active Substance: INFLIXIMAB
     Route: 041
  25. REMICADE [Suspect]
     Active Substance: INFLIXIMAB
     Route: 041
  26. REMICADE [Suspect]
     Active Substance: INFLIXIMAB
     Dosage: DOSE: 1105 MG AND 1100 AS PER PATIENT WEIGHT
     Route: 041
  27. REMICADE [Suspect]
     Active Substance: INFLIXIMAB
     Route: 041
  28. REMICADE [Suspect]
     Active Substance: INFLIXIMAB
     Route: 041
  29. REMICADE [Suspect]
     Active Substance: INFLIXIMAB
     Route: 041
  30. REMICADE [Suspect]
     Active Substance: INFLIXIMAB
     Route: 041
  31. REMICADE [Suspect]
     Active Substance: INFLIXIMAB
     Route: 041
  32. REMICADE [Suspect]
     Active Substance: INFLIXIMAB
     Route: 041
  33. REMICADE [Suspect]
     Active Substance: INFLIXIMAB
     Route: 041
  34. REMICADE [Suspect]
     Active Substance: INFLIXIMAB
     Route: 041
     Dates: start: 20251128

REACTIONS (22)
  - Anal fistula [Not Recovered/Not Resolved]
  - Anal abscess [Recovering/Resolving]
  - Salmonellosis [Unknown]
  - Crohn^s disease [Not Recovered/Not Resolved]
  - Abdominal pain [Not Recovered/Not Resolved]
  - Abdominal pain upper [Recovered/Resolved]
  - Gastrointestinal pain [Recovered/Resolved]
  - Incorrect dose administered [Unknown]
  - Sleep apnoea syndrome [Recovered/Resolved]
  - Nasopharyngitis [Recovered/Resolved]
  - Product tampering [Unknown]
  - Hepatic enzyme increased [Unknown]
  - Electric shock [Unknown]
  - Abscess [Recovering/Resolving]
  - Thermal burn [Recovering/Resolving]
  - Blister [Recovering/Resolving]
  - Oropharyngeal pain [Recovered/Resolved]
  - Stress [Not Recovered/Not Resolved]
  - Abdominal rigidity [Recovering/Resolving]
  - Weight increased [Unknown]
  - Fatigue [Recovered/Resolved]
  - Off label use [Unknown]

NARRATIVE: CASE EVENT DATE: 20210410
